FAERS Safety Report 11435122 (Version 1)
Quarter: 2015Q3

REPORT INFORMATION
  Report Type: Report from Study
  Country: VE (occurrence: VE)
  Receive Date: 20150831
  Receipt Date: 20150831
  Transmission Date: 20151125
  Serious: Yes (Other)
  Sender: FDA-Public Use
  Company Number: PHHY2015VE102837

PATIENT
  Age: 67 Year
  Sex: Female

DRUGS (5)
  1. UNASYN [Concomitant]
     Active Substance: AMPICILLIN SODIUM\SULBACTAM SODIUM
     Indication: PRODUCT USED FOR UNKNOWN INDICATION
     Route: 065
  2. SANODIN [Concomitant]
     Indication: PAIN
     Route: 065
  3. ACLASTA [Suspect]
     Active Substance: ZOLEDRONIC ACID
     Indication: CARTILAGE DEVELOPMENT DISORDER
     Dosage: 1 DF
     Route: 065
     Dates: start: 201206
  4. GERBIN [Concomitant]
     Indication: PRODUCT USED FOR UNKNOWN INDICATION
     Route: 065
  5. ACLASTA [Suspect]
     Active Substance: ZOLEDRONIC ACID
     Dosage: UNK
     Route: 065
     Dates: start: 201402, end: 201402

REACTIONS (13)
  - Pharyngitis [Unknown]
  - Pain in extremity [Unknown]
  - Renal disorder [Unknown]
  - Fall [Unknown]
  - Sinusitis [Unknown]
  - Fibula fracture [Unknown]
  - Ear infection [Unknown]
  - Bronchial disorder [Unknown]
  - Pain [Unknown]
  - Bronchitis [Unknown]
  - Functional gastrointestinal disorder [Unknown]
  - Arthralgia [Unknown]
  - Bone fissure [Unknown]

NARRATIVE: CASE EVENT DATE: 20150824
